FAERS Safety Report 6988201-X (Version None)
Quarter: 2010Q3

REPORT INFORMATION
  Report Type: 
  Country: None (occurrence: None)
  Receive Date: 20100916
  Receipt Date: 20100913
  Transmission Date: 20110219
  Serious: Yes (Other)
  Sender: FDA-Public Use
  Company Number: IR-ROCHE-726810

PATIENT

DRUGS (2)
  1. RIBAVIRIN [Suspect]
     Route: 065
  2. PEGINTERFERON ALFA-2A [Suspect]
     Dosage: DRUG: PEGAFERON (PEGYLATED INTERFERON ALPHA 2A)
     Route: 065

REACTIONS (7)
  - ANAEMIA [None]
  - HEPATITIS C [None]
  - HYPOTHYROIDISM [None]
  - NEUTROPENIA [None]
  - PLATELET COUNT DECREASED [None]
  - TREATMENT FAILURE [None]
  - WEIGHT DECREASED [None]
